FAERS Safety Report 19194525 (Version 2)
Quarter: 2021Q2

REPORT INFORMATION
  Report Type: Report from Study
  Country: FR (occurrence: FR)
  Receive Date: 20210429
  Receipt Date: 20210430
  Transmission Date: 20210717
  Serious: Yes (Hospitalization)
  Sender: FDA-Public Use
  Company Number: FR-ROCHE-2815970

PATIENT
  Age: 69 Year
  Sex: Female
  Weight: 97 kg

DRUGS (8)
  1. BEVACIZUMAB. [Suspect]
     Active Substance: BEVACIZUMAB
     Indication: CERVIX CARCINOMA
     Dosage: (FREQUENCY AND FORM OF ADMIN AS PER PROTOCOL)
     Route: 042
     Dates: start: 20210201, end: 20210223
  2. COAPROVEL [Concomitant]
     Active Substance: HYDROCHLOROTHIAZIDE\IRBESARTAN
     Indication: HYPERTENSION
     Route: 048
     Dates: start: 20201118
  3. ATEZOLIZUMAB. [Suspect]
     Active Substance: ATEZOLIZUMAB
     Indication: CERVIX CARCINOMA
     Dosage: (FREQUENCY AND FORM OF ADMIN AS PER PROTOCOL)
     Route: 041
     Dates: start: 20210201, end: 20210408
  4. PACLITAXEL. [Suspect]
     Active Substance: PACLITAXEL
     Indication: CERVIX CARCINOMA
     Dosage: (FREQUENCY AND FORM OF ADMIN AS PER PROTOCOL)
     Route: 042
     Dates: start: 20210201, end: 20210408
  5. ATENOLOL. [Concomitant]
     Active Substance: ATENOLOL
     Indication: HYPERTENSION
     Route: 048
     Dates: start: 20080801
  6. DIGOXINE [Concomitant]
     Active Substance: DIGOXIN
     Indication: ATRIAL FIBRILLATION
     Route: 048
     Dates: start: 20200801
  7. INNOHEP [Concomitant]
     Active Substance: TINZAPARIN SODIUM
     Indication: VENOUS THROMBOSIS
     Route: 058
     Dates: start: 20210305
  8. CARBOPLATINE [Suspect]
     Active Substance: CARBOPLATIN
     Indication: CERVIX CARCINOMA
     Dosage: (FREQUENCY AND FORM OF ADMIN AS PER PROTOCOL)
     Route: 042
     Dates: start: 20210201, end: 20210408

REACTIONS (1)
  - Neutropenia [Recovered/Resolved]

NARRATIVE: CASE EVENT DATE: 20210419
